FAERS Safety Report 9969969 (Version 1)
Quarter: 2014Q1

REPORT INFORMATION
  Report Type: Spontaneous
  Country: US (occurrence: None)
  Receive Date: 20140127
  Receipt Date: 20140127
  Transmission Date: 20141002
  Serious: Yes (Life-Threatening, Hospitalization)
  Sender: FDA-Public Use
  Company Number: 1195819

PATIENT
  Age: 93 Year
  Sex: Female
  Weight: 55 kg

DRUGS (13)
  1. ACTIVASE [Suspect]
     Indication: CEREBROVASCULAR ACCIDENT
     Dosage: (61.1 MG, ONE TIME DOSE), INTRAVENOUS (NOT OTHERWISE SPECIFIED)
     Route: 042
     Dates: start: 20120225, end: 20120225
  2. ACE-INHIBITORS [Suspect]
     Indication: PRODUCT USED FOR UNKNOWN INDICATION
  3. LISINOPRIL (LISINOPRIL) [Concomitant]
  4. BUSPAR (BUSPIRONE HYDROCHLORIDE) (10 MG) [Concomitant]
  5. SYNTHROID (LEVOTHYROXINE SODIUM) [Concomitant]
  6. REMERON (MIRTAZAPINE) [Concomitant]
  7. ZANTAC (RANITIDINE HYDROCHLORIDE) [Concomitant]
  8. OXYBUTYNIN (OXYBUTYNIN HYDROCHLORIDE) [Concomitant]
  9. REQUIP (ROPINIROLE HYDROCHLORIDE) [Concomitant]
  10. SENNA PLUS (SENNA, DOCUSATE SODIUM, SENNOSIDES) (TABLET) [Concomitant]
  11. LEVAQUIN (LEVOFLOXACIN) [Concomitant]
  12. PLAVIX (CLOPIDOGREL BISULFATE) (CLOPIDOGREL BISULFATE) [Concomitant]
  13. PRAVACHOL (PRAVASTATIN SODIUM) [Concomitant]

REACTIONS (1)
  - Angioedema [None]
